FAERS Safety Report 4777889-X (Version None)
Quarter: 2005Q3

REPORT INFORMATION
  Report Type: 
  Country: None (occurrence: None)
  Receive Date: 20050926
  Receipt Date: 20050914
  Transmission Date: 20060218
  Serious: Yes (Disabling)
  Sender: FDA-Public Use
  Company Number: DK-SOLVAY-00205003008

PATIENT
  Age: 10828 Day
  Sex: Male
  Weight: 75 kg

DRUGS (2)
  1. COVERSYL [Suspect]
     Indication: ESSENTIAL HYPERTENSION
     Dosage: DAILY DOSE: 4 MILLIGRAM(S)
     Route: 048
     Dates: start: 20050531, end: 20050804
  2. COVERSYL [Suspect]
     Dosage: DAILY DOSE: 8 MILLIGRAM(S)
     Route: 048
     Dates: start: 20050805, end: 20050816

REACTIONS (2)
  - DRUG INEFFECTIVE [None]
  - HEART RATE DECREASED [None]
